FAERS Safety Report 5646761-5 (Version None)
Quarter: 2008Q1

REPORT INFORMATION
  Report Type: 
  Country: None (occurrence: None)
  Receive Date: 20080303
  Receipt Date: 20080225
  Transmission Date: 20080703
  Serious: Yes (Hospitalization)
  Sender: FDA-Public Use
  Company Number: GB-ROCHE-549251

PATIENT
  Age: 34 Year
  Sex: Male

DRUGS (2)
  1. CELLCEPT [Suspect]
     Indication: IGA NEPHROPATHY
     Route: 048
  2. RAMIPRIL [Concomitant]

REACTIONS (2)
  - CARDIAC DISORDER [None]
  - PALPITATIONS [None]
